FAERS Safety Report 12134153 (Version 1)
Quarter: 2016Q1

REPORT INFORMATION
  Report Type: Spontaneous
  Country: US (occurrence: US)
  Receive Date: 20160301
  Receipt Date: 20160301
  Transmission Date: 20160526
  Serious: No
  Sender: FDA-Public Use
  Company Number: US-SWAN PHARMACEUTICALS, LLC-2015MYN000072

PATIENT
  Age: 54 Year
  Sex: Female
  Weight: 72.11 kg

DRUGS (16)
  1. LASIX [Concomitant]
     Active Substance: FUROSEMIDE
  2. BRILINTA [Concomitant]
     Active Substance: TICAGRELOR
  3. ASPIRIN                            /00002701/ [Concomitant]
     Active Substance: ASPIRIN
  4. GRANISETRON [Concomitant]
     Active Substance: GRANISETRON
  5. NADOLOL. [Concomitant]
     Active Substance: NADOLOL
  6. XARELTO [Concomitant]
     Active Substance: RIVAROXABAN
  7. JUXTAPID [Suspect]
     Active Substance: LOMITAPIDE MESYLATE
     Indication: TYPE IIA HYPERLIPIDAEMIA
     Dosage: 5 MG, QD
     Route: 048
     Dates: start: 20140711, end: 20140909
  8. OMEPRAZOLE. [Concomitant]
     Active Substance: OMEPRAZOLE
  9. LUNESTA [Concomitant]
     Active Substance: ESZOPICLONE
  10. AMIODARONE HYDROCHLORIDE. [Suspect]
     Active Substance: AMIODARONE HYDROCHLORIDE
     Indication: PRODUCT USED FOR UNKNOWN INDICATION
  11. NORVASC [Concomitant]
     Active Substance: AMLODIPINE BESYLATE
  12. CLONIDINE. [Concomitant]
     Active Substance: CLONIDINE
  13. TIGAN [Concomitant]
     Active Substance: TRIMETHOBENZAMIDE HYDROCHLORIDE
  14. JUXTAPID [Suspect]
     Active Substance: LOMITAPIDE MESYLATE
     Dosage: 10 MG, QD
     Route: 048
     Dates: start: 20140910
  15. ZETIA [Concomitant]
     Active Substance: EZETIMIBE
  16. ATENOLOL. [Concomitant]
     Active Substance: ATENOLOL

REACTIONS (3)
  - Nausea [Unknown]
  - Diarrhoea [Recovered/Resolved]
  - Weight decreased [Recovered/Resolved]

NARRATIVE: CASE EVENT DATE: 20140711
